FAERS Safety Report 16993736 (Version 1)
Quarter: 2019Q4

REPORT INFORMATION
  Report Type: Spontaneous
  Country: FR (occurrence: FR)
  Receive Date: 20191105
  Receipt Date: 20191105
  Transmission Date: 20200122
  Serious: Yes (Hospitalization, Other)
  Sender: FDA-Public Use
  Company Number: FR-SA-2019SA300062

PATIENT
  Age: 68 Year
  Sex: Female

DRUGS (22)
  1. SPIRONOLACTONE. [Suspect]
     Active Substance: SPIRONOLACTONE
     Indication: HYPERTENSION
     Dosage: UNK UNK, UNK
     Route: 048
  2. DILTIAZEM HYDROCHLORIDE. [Suspect]
     Active Substance: DILTIAZEM HYDROCHLORIDE
     Indication: HYPERTENSION
     Dosage: 300 MG, QD
     Route: 048
  3. ANORO ELLIPTA [Concomitant]
     Active Substance: UMECLIDINIUM BROMIDE\VILANTEROL TRIFENATATE
     Dosage: UNK UNK, UNK
  4. DICLOFENAC [Suspect]
     Active Substance: DICLOFENAC
     Indication: PRODUCT USED FOR UNKNOWN INDICATION
     Dosage: UNK UNK, UNK
     Route: 065
  5. POTASSIUM CHLORIDE. [Suspect]
     Active Substance: POTASSIUM CHLORIDE
     Indication: PRODUCT USED FOR UNKNOWN INDICATION
     Dosage: 1800 MG, QD
     Route: 048
  6. APROVEL [Suspect]
     Active Substance: IRBESARTAN
     Indication: HYPERTENSION
     Dosage: 150 MG, QD
     Route: 048
  7. METFORMINE [METFORMIN] [Concomitant]
     Active Substance: METFORMIN HYDROCHLORIDE
     Dosage: UNK UNK, UNK
  8. DEPAKOTE [Concomitant]
     Active Substance: DIVALPROEX SODIUM
     Dosage: UNK UNK, UNK
  9. FUROSEMIDE. [Concomitant]
     Active Substance: FUROSEMIDE
     Dosage: UNK UNK, UNK
  10. MOXYDAR [Concomitant]
     Active Substance: ALUMINUM HYDROXIDE\ALUMINUM PHOSPHATE\GUAR GUM\MAGNESIUM HYDROXIDE
     Dosage: UNK UNK, UNK
  11. ESOMEPRAZOLE. [Concomitant]
     Active Substance: ESOMEPRAZOLE MAGNESIUM
     Dosage: UNK UNK, UNK
  12. VOGALENE [Concomitant]
     Active Substance: METOPIMAZINE
     Dosage: UNK UNK, UNK (ORAL LYOPHILISATE)
  13. BRONCHOKOD [Concomitant]
     Active Substance: CARBOCYSTEINE
     Dosage: UNK, UNK
  14. DIPIPERON [Concomitant]
     Active Substance: PIPAMPERONE
     Dosage: UNK UNK, UNK
  15. VITAMINE B12 [Concomitant]
     Active Substance: CYANOCOBALAMIN
     Dosage: UNK UNK, UNK
  16. JANUVIA [Concomitant]
     Active Substance: SITAGLIPTIN PHOSPHATE
     Dosage: UNK UNK, UNK
  17. ALVESCO [Concomitant]
     Active Substance: CICLESONIDE
     Dosage: UNK UNK, UNK
  18. TOUJEO [Concomitant]
     Active Substance: INSULIN GLARGINE
     Dosage: UNK UNK, UNK
  19. TRINIPATCH [Concomitant]
     Active Substance: NITROGLYCERIN
     Dosage: 5 MG/ 24 HOURS
  20. DOLIPRANE [Concomitant]
     Active Substance: ACETAMINOPHEN
     Dosage: UNK UNK, UNK
  21. PRAZEPAM [Concomitant]
     Active Substance: PRAZEPAM
     Dosage: UNK UNK, UNK
  22. KARDEGIC [Concomitant]
     Active Substance: ASPIRIN DL-LYSINE
     Dosage: UNK UNK, UNK

REACTIONS (4)
  - Sinus bradycardia [Unknown]
  - Hyperkalaemia [Recovered/Resolved]
  - Gastrointestinal disorder [Recovered/Resolved]
  - Malaise [Recovered/Resolved]

NARRATIVE: CASE EVENT DATE: 20190912
